FAERS Safety Report 18337390 (Version 2)
Quarter: 2020Q4

REPORT INFORMATION
  Report Type: Spontaneous
  Country: US (occurrence: US)
  Receive Date: 20201002
  Receipt Date: 20201009
  Transmission Date: 20210113
  Serious: Yes (Hospitalization, Other)
  Sender: FDA-Public Use
  Company Number: US-ASTRAZENECA-2020SF25300

PATIENT
  Age: 18493 Day
  Sex: Female
  Weight: 93.4 kg

DRUGS (47)
  1. FARXIGA [Suspect]
     Active Substance: DAPAGLIFLOZIN PROPANEDIOL
     Indication: TYPE 2 DIABETES MELLITUS
     Route: 048
     Dates: start: 20150207, end: 201801
  2. FARXIGA [Suspect]
     Active Substance: DAPAGLIFLOZIN PROPANEDIOL
     Indication: BLOOD PRESSURE DECREASED
     Route: 048
     Dates: start: 20150207, end: 201801
  3. PAROXETINE. [Concomitant]
     Active Substance: PAROXETINE
  4. CIPROFLOXACIN. [Concomitant]
     Active Substance: CIPROFLOXACIN
  5. LORAZEPAM. [Concomitant]
     Active Substance: LORAZEPAM
  6. VICTOZA [Concomitant]
     Active Substance: LIRAGLUTIDE
  7. LANTUS [Concomitant]
     Active Substance: INSULIN GLARGINE
  8. SIMVASTATIN. [Concomitant]
     Active Substance: SIMVASTATIN
  9. ABILIFY [Concomitant]
     Active Substance: ARIPIPRAZOLE
  10. HYDROMORPHONE [Concomitant]
     Active Substance: HYDROMORPHONE
  11. DOXYCYCLINE HYCLATE. [Concomitant]
     Active Substance: DOXYCYCLINE HYCLATE
  12. ARIPIPRAZOLE. [Concomitant]
     Active Substance: ARIPIPRAZOLE
  13. NADOLOL. [Concomitant]
     Active Substance: NADOLOL
  14. ZALEPLON. [Concomitant]
     Active Substance: ZALEPLON
  15. LUMIGAN [Concomitant]
     Active Substance: BIMATOPROST
  16. ORPHENADRINE [Concomitant]
     Active Substance: ORPHENADRINE
  17. FARXIGA [Suspect]
     Active Substance: DAPAGLIFLOZIN PROPANEDIOL
     Indication: WEIGHT DECREASED
     Route: 048
     Dates: start: 20150207, end: 201801
  18. PROAIR HFA [Concomitant]
     Active Substance: ALBUTEROL SULFATE
  19. HUMULIN NOS [Concomitant]
     Active Substance: INSULIN HUMAN
  20. TRULICITY [Concomitant]
     Active Substance: DULAGLUTIDE
  21. ACETAZOLAMIDE. [Concomitant]
     Active Substance: ACETAZOLAMIDE
  22. ONDANSETRON [Concomitant]
     Active Substance: ONDANSETRON
  23. BENZONATATE. [Concomitant]
     Active Substance: BENZONATATE
  24. LEVOTHYROXINE. [Concomitant]
     Active Substance: LEVOTHYROXINE
  25. MUPIROCIN. [Concomitant]
     Active Substance: MUPIROCIN
  26. VIGAMOX [Concomitant]
     Active Substance: MOXIFLOXACIN HYDROCHLORIDE
  27. IMIQUIMOD. [Concomitant]
     Active Substance: IMIQUIMOD
  28. ESZOPICLONE. [Concomitant]
     Active Substance: ESZOPICLONE
  29. OMEPRAZOLE. [Concomitant]
     Active Substance: OMEPRAZOLE
  30. CEFUROXIME. [Concomitant]
     Active Substance: CEFUROXIME
  31. RIZATRIPTAN. [Concomitant]
     Active Substance: RIZATRIPTAN
  32. TRETINOIN. [Concomitant]
     Active Substance: TRETINOIN
  33. IMITREX [Concomitant]
     Active Substance: SUMATRIPTAN SUCCINATE
  34. PREDNISONE. [Concomitant]
     Active Substance: PREDNISONE
  35. SYNTHROID [Concomitant]
     Active Substance: LEVOTHYROXINE SODIUM
  36. METFORMIN [Concomitant]
     Active Substance: METFORMIN HYDROCHLORIDE
  37. BYETTA [Concomitant]
     Active Substance: EXENATIDE
  38. COMBIGAN [Concomitant]
     Active Substance: BRIMONIDINE TARTRATE\TIMOLOL MALEATE
  39. QUETIAPINE. [Concomitant]
     Active Substance: QUETIAPINE
  40. XIFAXAN [Concomitant]
     Active Substance: RIFAXIMIN
  41. CEPHALEXIN. [Concomitant]
     Active Substance: CEPHALEXIN
  42. OXYCODONE-ACETAMINOPHEN [Concomitant]
     Active Substance: ACETAMINOPHEN\OXYCODONE HYDROCHLORIDE
  43. RIZATRIPTAN. [Concomitant]
     Active Substance: RIZATRIPTAN
  44. HYOPHEN [Concomitant]
     Active Substance: BENZOIC ACID\HYOSCYAMINE SULFATE\METHENAMINE\METHYLENE BLUE\PHENYL SALICYLATE
  45. GLUCOPHAGE [Concomitant]
     Active Substance: METFORMIN HYDROCHLORIDE
  46. SUMATRIPTAN. [Concomitant]
     Active Substance: SUMATRIPTAN
  47. HYDROMORPHONE [Concomitant]
     Active Substance: HYDROMORPHONE

REACTIONS (4)
  - Groin abscess [Unknown]
  - Necrotising soft tissue infection [Unknown]
  - Fournier^s gangrene [Unknown]
  - Sepsis [Unknown]

NARRATIVE: CASE EVENT DATE: 20171222
